FAERS Safety Report 7741741-8 (Version None)
Quarter: 2011Q3

REPORT INFORMATION
  Report Type: 
  Country: None (occurrence: None)
  Receive Date: 20110912
  Receipt Date: 20110831
  Transmission Date: 20111222
  Serious: Yes (Hospitalization)
  Sender: FDA-Public Use
  Company Number: US-BIOGENIDEC-2011BI026132

PATIENT
  Age: 65 Year
  Sex: Female
  Weight: 98 kg

DRUGS (2)
  1. AVONEX [Suspect]
     Indication: MULTIPLE SCLEROSIS
     Route: 030
     Dates: start: 20090801, end: 20110701
  2. AVONEX [Suspect]
     Route: 030
     Dates: start: 20071114

REACTIONS (1)
  - BREAST CANCER [None]
